FAERS Safety Report 25756076 (Version 1)
Quarter: 2025Q3

REPORT INFORMATION
  Report Type: Spontaneous
  Country: JP (occurrence: JP)
  Receive Date: 20250903
  Receipt Date: 20250903
  Transmission Date: 20251020
  Serious: Yes (Other)
  Sender: AMGEN
  Company Number: JP-AMGEN-JPNSP2025137954

PATIENT

DRUGS (5)
  1. IMDELLTRA [Suspect]
     Active Substance: TARLATAMAB-DLLE
     Indication: Small cell lung cancer
     Route: 040
     Dates: start: 20250709
  2. IMDELLTRA [Suspect]
     Active Substance: TARLATAMAB-DLLE
     Route: 040
     Dates: start: 20250716
  3. IMDELLTRA [Suspect]
     Active Substance: TARLATAMAB-DLLE
     Route: 040
     Dates: start: 20250723
  4. IMDELLTRA [Suspect]
     Active Substance: TARLATAMAB-DLLE
     Route: 040
     Dates: start: 20250806
  5. IMDELLTRA [Suspect]
     Active Substance: TARLATAMAB-DLLE
     Route: 040
     Dates: start: 20250820, end: 20250827

REACTIONS (3)
  - Non-small cell lung cancer [Unknown]
  - Small cell lung cancer [Not Recovered/Not Resolved]
  - Pyrexia [Recovered/Resolved]

NARRATIVE: CASE EVENT DATE: 20250709
